FAERS Safety Report 4801341-6 (Version None)
Quarter: 2005Q4

REPORT INFORMATION
  Report Type: 
  Country: None (occurrence: None)
  Receive Date: 20051017
  Receipt Date: 20050328
  Transmission Date: 20060501
  Serious: Yes (Hospitalization, Disabling, Other)
  Sender: FDA-Public Use
  Company Number: US-MERCK-0503USA04976

PATIENT
  Age: 48 Year
  Sex: Female
  Weight: 99 kg

DRUGS (4)
  1. VIOXX [Suspect]
     Indication: ARTHRITIS
     Route: 048
     Dates: start: 20020101, end: 20040101
  2. ELAVIL [Concomitant]
     Route: 065
  3. ZOLOFT [Concomitant]
     Route: 065
  4. AMITRIPTYLINE HYDROCHLORIDE [Concomitant]
     Route: 065

REACTIONS (10)
  - COUGH [None]
  - DEPRESSION [None]
  - ISCHAEMIC STROKE [None]
  - OTITIS EXTERNA [None]
  - SHOULDER PAIN [None]
  - THROMBOSIS [None]
  - TINEA CRURIS [None]
  - TRANSIENT ISCHAEMIC ATTACK [None]
  - URINARY TRACT INFECTION [None]
  - VASCULAR DEMENTIA [None]
